FAERS Safety Report 25567746 (Version 2)
Quarter: 2025Q3

REPORT INFORMATION
  Report Type: Spontaneous
  Country: US (occurrence: US)
  Receive Date: 20250716
  Receipt Date: 20250716
  Transmission Date: 20251020
  Serious: Yes (Hospitalization, Other)
  Sender: NOVO NORDISK
  Company Number: US-NOVOPROD-1273365

PATIENT
  Age: 69 Year
  Sex: Female

DRUGS (10)
  1. OZEMPIC [Suspect]
     Active Substance: SEMAGLUTIDE
     Indication: Type 2 diabetes mellitus
     Dosage: 0.25 MG, QW
     Route: 058
     Dates: start: 202303, end: 202303
  2. OZEMPIC [Suspect]
     Active Substance: SEMAGLUTIDE
     Dosage: 0.5 MG, QW
     Route: 058
     Dates: start: 202303, end: 202303
  3. LISINOPRIL [Concomitant]
     Active Substance: LISINOPRIL
     Indication: Hypertension
     Dates: start: 20200101
  4. ATORVASTATIN [Concomitant]
     Active Substance: ATORVASTATIN
     Indication: Blood cholesterol increased
     Dates: start: 20200101
  5. SERTRALINE [Concomitant]
     Active Substance: SERTRALINE HYDROCHLORIDE
     Indication: Antidepressant therapy
     Dates: start: 20200101
  6. LEVEMIR [Concomitant]
     Active Substance: INSULIN DETEMIR
     Indication: Diabetes mellitus
     Dates: start: 20200101
  7. OMEPRAZOLE [Concomitant]
     Active Substance: OMEPRAZOLE
     Indication: Gastrooesophageal reflux disease
     Dates: start: 20220101
  8. PROMETHAZINE [Concomitant]
     Active Substance: PROMETHAZINE HYDROCHLORIDE
     Indication: Nausea
     Dates: start: 20220101
  9. OZEMPIC [Suspect]
     Active Substance: SEMAGLUTIDE
     Indication: Type 2 diabetes mellitus
     Route: 058
     Dates: start: 20201001
  10. OZEMPIC [Suspect]
     Active Substance: SEMAGLUTIDE
     Route: 058
     Dates: end: 20230801

REACTIONS (1)
  - Impaired gastric emptying [Not Recovered/Not Resolved]

NARRATIVE: CASE EVENT DATE: 20230101
